FAERS Safety Report 19615683 (Version 1)
Quarter: 2021Q3

REPORT INFORMATION
  Report Type: Spontaneous
  Country: US (occurrence: US)
  Receive Date: 20210727
  Receipt Date: 20210727
  Transmission Date: 20211014
  Serious: Yes (Other)
  Sender: FDA-Public Use
  Company Number: US-PFIZER INC-2021894414

PATIENT
  Age: 51 Year
  Sex: Male

DRUGS (1)
  1. VFEND [Suspect]
     Active Substance: VORICONAZOLE
     Indication: OSTEOMYELITIS
     Dosage: TAKE ONE AND ONE HALF TABLET TWICE A DAY, 2X/DAY
     Route: 048

REACTIONS (2)
  - Lung neoplasm malignant [Unknown]
  - Off label use [Unknown]
